FAERS Safety Report 14109895 (Version 1)
Quarter: 2017Q4

REPORT INFORMATION
  Report Type: Spontaneous
  Country: US (occurrence: US)
  Receive Date: 20171020
  Receipt Date: 20171020
  Transmission Date: 20180321
  Serious: No
  Sender: FDA-Public Use
  Company Number: US-TEVA-749000ACC

PATIENT
  Age: 70 Year
  Sex: Female
  Weight: 74.91 kg

DRUGS (1)
  1. MICONAZOLE 7 [Suspect]
     Active Substance: MICONAZOLE NITRATE
     Indication: FUNGAL INFECTION
     Dosage: 2 TIMES, 1.59 OUNZE
     Dates: start: 20170220, end: 20170222

REACTIONS (2)
  - Product use in unapproved indication [Unknown]
  - Fungal skin infection [Recovered/Resolved]

NARRATIVE: CASE EVENT DATE: 20170220
